FAERS Safety Report 8240140-2 (Version None)
Quarter: 2012Q1

REPORT INFORMATION
  Report Type: 
  Country: None (occurrence: None)
  Receive Date: 20120328
  Receipt Date: 20120320
  Transmission Date: 20120608
  Serious: Yes (Hospitalization)
  Sender: FDA-Public Use
  Company Number: US-BAYER-201036399NA

PATIENT
  Age: 39 Year
  Sex: Female
  Weight: 59 kg

DRUGS (2)
  1. YASMIN [Suspect]
     Indication: ACNE
     Dates: start: 20050701, end: 20050901
  2. YASMIN [Suspect]
     Indication: POLYCYSTIC OVARIES

REACTIONS (3)
  - PERIPHERAL VASCULAR DISORDER [None]
  - DEEP VEIN THROMBOSIS [None]
  - VARICOSE VEIN [None]
